FAERS Safety Report 13145889 (Version 2)
Quarter: 2017Q1

REPORT INFORMATION
  Report Type: Spontaneous
  Country: EG (occurrence: EG)
  Receive Date: 20170124
  Receipt Date: 20170203
  Transmission Date: 20170428
  Serious: Yes (Death, Other)
  Sender: FDA-Public Use
  Company Number: EG-AMGEN-EGYSP2017011755

PATIENT
  Age: 27 Year
  Sex: Female

DRUGS (8)
  1. LIPITOR [Concomitant]
     Active Substance: ATORVASTATIN CALCIUM
     Dosage: 80 MG, UNK
  2. REPATHA [Suspect]
     Active Substance: EVOLOCUMAB
     Indication: TYPE IIA HYPERLIPIDAEMIA
     Dosage: 420 MG, QMO
     Route: 058
     Dates: start: 20160910, end: 20170119
  3. EZETIMIBE. [Concomitant]
     Active Substance: EZETIMIBE
     Dosage: 10 MG, UNK
  4. CONCOR [Concomitant]
     Active Substance: BISOPROLOL FUMARATE
     Dosage: 10, UNK
  5. MONO MAK DEPOT [Concomitant]
     Dosage: 100, UNK
  6. ADANCOR [Concomitant]
     Active Substance: NICORANDIL
     Dosage: 10, UNK
  7. ARIXTRA [Concomitant]
     Active Substance: FONDAPARINUX SODIUM
     Dosage: 2.5 MG, QD
     Route: 058
  8. PLAVIX [Concomitant]
     Active Substance: CLOPIDOGREL BISULFATE

REACTIONS (5)
  - Influenza [Unknown]
  - Drug effect incomplete [Unknown]
  - Myocardial infarction [Fatal]
  - Cardiogenic shock [Fatal]
  - Chest pain [Unknown]

NARRATIVE: CASE EVENT DATE: 20170119
